FAERS Safety Report 19032159 (Version 1)
Quarter: 2021Q1

REPORT INFORMATION
  Report Type: Spontaneous
  Country: US (occurrence: US)
  Receive Date: 20210319
  Receipt Date: 20210319
  Transmission Date: 20210420
  Serious: No
  Sender: FDA-Public Use
  Company Number: US-NANJING KING-FRIEND BIOCHEMICAL PHARMACEUTICAL CO. LTD.-2021NKF00026

PATIENT
  Age: 72 Year
  Sex: Male

DRUGS (4)
  1. ENOXAPARIN SODIUM. [Suspect]
     Active Substance: ENOXAPARIN SODIUM
     Indication: THROMBOSIS
     Dosage: 1 INJECTION, 2X/DAY
     Route: 058
     Dates: start: 20210205, end: 202102
  2. AMLODIPINE [Concomitant]
     Active Substance: AMLODIPINE BESYLATE
  3. LISINOPRIL. [Concomitant]
     Active Substance: LISINOPRIL
  4. LOVASTATIN. [Concomitant]
     Active Substance: LOVASTATIN

REACTIONS (6)
  - Fall [Recovered/Resolved]
  - Injection site bruising [Not Recovered/Not Resolved]
  - Nausea [Recovered/Resolved]
  - Cough [Not Recovered/Not Resolved]
  - Vomiting [Recovered/Resolved]
  - Dizziness [Unknown]

NARRATIVE: CASE EVENT DATE: 202102
